FAERS Safety Report 4814687-2 (Version None)
Quarter: 2005Q4

REPORT INFORMATION
  Report Type: 
  Country: None (occurrence: None)
  Receive Date: 20051028
  Receipt Date: 20041214
  Transmission Date: 20060501
  Serious: No
  Sender: FDA-Public Use
  Company Number: US-GLAXOSMITHKLINE-A0537261A

PATIENT
  Age: 49 Year
  Sex: Male

DRUGS (9)
  1. ADVAIR DISKUS 100/50 [Suspect]
     Indication: ASTHMA
     Dosage: 1PUFF TWICE PER DAY
     Route: 055
  2. ANTIHISTAMINE [Concomitant]
  3. DECONGESTANT [Concomitant]
  4. ZETIA [Concomitant]
  5. ACTOS [Concomitant]
  6. NIASPAN [Concomitant]
  7. VITAMIN B COMPLEX CAP [Concomitant]
  8. ALBUTEROL [Concomitant]
  9. NASONEX [Concomitant]

REACTIONS (1)
  - DYSPNOEA EXACERBATED [None]
